FAERS Safety Report 10176399 (Version 1)
Quarter: 2014Q2

REPORT INFORMATION
  Report Type: Spontaneous
  Country: US (occurrence: US)
  Receive Date: 20140516
  Receipt Date: 20140516
  Transmission Date: 20141212
  Serious: Yes (Other)
  Sender: FDA-Public Use
  Company Number: CHPA2014US006588

PATIENT
  Age: 84 Year
  Sex: Female

DRUGS (3)
  1. THERAPEUTIC MINERAL ICE [Suspect]
     Indication: NEUROPATHY PERIPHERAL
     Dosage: UNK
     Route: 061
  2. THERAPEUTIC MINERAL ICE [Suspect]
     Indication: OFF LABEL USE
  3. CELEBREX [Concomitant]

REACTIONS (2)
  - Neuropathy peripheral [Not Recovered/Not Resolved]
  - Therapeutic response changed [Unknown]
